FAERS Safety Report 24720115 (Version 1)
Quarter: 2024Q4

REPORT INFORMATION
  Report Type: Spontaneous
  Country: ES (occurrence: ES)
  Receive Date: 20241211
  Receipt Date: 20241211
  Transmission Date: 20250115
  Serious: No
  Sender: ASTELLAS
  Company Number: ES-ASTELLAS-2024-AER-023351

PATIENT
  Age: 48 Year
  Sex: Female

DRUGS (1)
  1. VEOZAH [Suspect]
     Active Substance: FEZOLINETANT
     Indication: Menopausal symptoms
     Dosage: 1 PER DAY WITH FOOD
     Route: 050
     Dates: start: 20241204

REACTIONS (3)
  - Swelling face [Unknown]
  - Pruritus [Unknown]
  - Ocular icterus [Unknown]

NARRATIVE: CASE EVENT DATE: 20241204
